FAERS Safety Report 8032362-0 (Version None)
Quarter: 2011Q4

REPORT INFORMATION
  Report Type: 
  Country: None (occurrence: None)
  Receive Date: 20111201
  Receipt Date: 20110322
  Transmission Date: 20120403
  Serious: Yes (Other)
  Sender: FDA-Public Use
  Company Number: 2011SP012977

PATIENT
  Sex: Male

DRUGS (1)
  1. NASONEX [Suspect]
     Indication: RHINITIS ALLERGIC
     Dosage: 50 MCG;QD;INH
     Route: 055

REACTIONS (2)
  - EPISTAXIS [None]
  - INCORRECT ROUTE OF DRUG ADMINISTRATION [None]
